FAERS Safety Report 7867318-1 (Version None)
Quarter: 2011Q4

REPORT INFORMATION
  Report Type: 
  Country: None (occurrence: None)
  Receive Date: 20111028
  Receipt Date: 20111020
  Transmission Date: 20120403
  Serious: Yes (Hospitalization)
  Sender: FDA-Public Use
  Company Number: FR-BRISTOL-MYERS SQUIBB COMPANY-16188583

PATIENT
  Age: 38 Year
  Sex: Male

DRUGS (2)
  1. ESCITALOPRAM OXALATE [Concomitant]
     Indication: DEPRESSION
  2. ABILIFY [Suspect]
     Indication: DEPRESSION
     Route: 048
     Dates: start: 20100301

REACTIONS (3)
  - SOMNOLENCE [None]
  - DEEP VEIN THROMBOSIS [None]
  - PULMONARY EMBOLISM [None]
